FAERS Safety Report 5582785-4 (Version None)
Quarter: 2008Q1

REPORT INFORMATION
  Report Type: 
  Country: None (occurrence: None)
  Receive Date: 20080107
  Receipt Date: 20071226
  Transmission Date: 20080703
  Serious: Yes (Hospitalization)
  Sender: FDA-Public Use
  Company Number: US-AVENTIS-200721804GDDC

PATIENT
  Age: 61 Year
  Sex: Male
  Weight: 100 kg

DRUGS (5)
  1. TAXOTERE [Suspect]
     Indication: PROSTATE CANCER
     Route: 042
     Dates: start: 20071204, end: 20071204
  2. PREDNISONE [Suspect]
     Indication: PROSTATE CANCER
     Dosage: DOSE: UNK
     Route: 048
     Dates: start: 20071001
  3. RADIATION THERAPY [Suspect]
     Indication: PROSTATE CANCER
     Dosage: DOSE: EXTERNAL BEAM, IMRT (75.6 CGY TOTAL DAOSE TO DATE)
     Dates: end: 20070905
  4. LISINOPRIL [Concomitant]
     Dosage: DOSE: UNK
  5. IBUPROFEN [Concomitant]
     Dosage: DOSE: UNK

REACTIONS (5)
  - ANOREXIA [None]
  - BLOOD CREATININE INCREASED [None]
  - FATIGUE [None]
  - HYPOTENSION [None]
  - WEIGHT DECREASED [None]
